FAERS Safety Report 6711097-8 (Version None)
Quarter: 2010Q2

REPORT INFORMATION
  Report Type: 
  Country: None (occurrence: None)
  Receive Date: 20100505
  Receipt Date: 20100221
  Transmission Date: 20101027
  Serious: No
  Sender: FDA-Public Use
  Company Number: US-KINGPHARMUSA00001-K201000209

PATIENT
  Sex: Male
  Weight: 74.83 kg

DRUGS (9)
  1. AVINZA [Suspect]
     Indication: PAIN
     Dosage: 90 MG, QAM
     Route: 048
     Dates: start: 20060101
  2. INSULIN [Concomitant]
     Indication: TYPE 1 DIABETES MELLITUS
     Dosage: 30-40 U, SLIDING SCALE
     Route: 058
  3. ALTACE [Concomitant]
     Indication: HYPERTENSION
     Dosage: 10 MG, QD
     Route: 048
  4. TOPROL-XL [Concomitant]
     Indication: HYPERTENSION
     Dosage: 25 MG, QD
     Route: 048
  5. LIPITOR [Concomitant]
     Indication: BLOOD CHOLESTEROL INCREASED
     Dosage: 40 MG, QD
     Route: 048
  6. CELEBREX [Concomitant]
     Indication: ARTHRITIS
     Dosage: 200 MG, BID
     Route: 048
  7. ASPIRIN [Concomitant]
     Dosage: 81 MG, QD
     Route: 048
  8. OXYCODONE HCL [Concomitant]
     Indication: BREAKTHROUGH PAIN
     Dosage: 5 MG, QID PRN
     Route: 048
  9. CYMBALTA [Concomitant]
     Indication: PAIN
     Dosage: 60 MG, QHS
     Route: 048

REACTIONS (4)
  - DRUG DIVERSION [None]
  - DRUG EFFECT DECREASED [None]
  - FEELING ABNORMAL [None]
  - WITHDRAWAL SYNDROME [None]
